FAERS Safety Report 8397366-7 (Version None)
Quarter: 2012Q2

REPORT INFORMATION
  Report Type: 
  Country: None (occurrence: None)
  Receive Date: 20120531
  Receipt Date: 20120524
  Transmission Date: 20120825
  Serious: No
  Sender: FDA-Public Use
  Company Number: US-BIOGENIDEC-2012BI018348

PATIENT
  Age: 49 Year
  Sex: Female

DRUGS (5)
  1. TYSABRI [Suspect]
     Indication: MULTIPLE SCLEROSIS
     Route: 042
     Dates: start: 20040826, end: 20060822
  2. TYSABRI [Suspect]
     Route: 042
     Dates: start: 20070228, end: 20110214
  3. GILENYA [Concomitant]
     Dates: start: 20111229
  4. TYSABRI [Suspect]
     Route: 042
     Dates: start: 20070201
  5. TYSABRI [Suspect]
     Route: 042
     Dates: start: 20110519, end: 20111014

REACTIONS (3)
  - NASOPHARYNGITIS [None]
  - CYSTITIS [None]
  - MULTIPLE SCLEROSIS RELAPSE [None]
